FAERS Safety Report 9801074 (Version 1)
Quarter: 2014Q1

REPORT INFORMATION
  Report Type: Spontaneous
  Country: US (occurrence: US)
  Receive Date: 20140107
  Receipt Date: 20140107
  Transmission Date: 20141002
  Serious: Yes (Other)
  Sender: FDA-Public Use
  Company Number: US-ELI_LILLY_AND_COMPANY-US201312009040

PATIENT
  Sex: Female

DRUGS (3)
  1. HUMALOG LISPRO [Suspect]
     Indication: GESTATIONAL DIABETES
     Dosage: UNK
     Route: 065
     Dates: end: 2008
  2. TYLENOL                            /00020001/ [Concomitant]
     Dosage: UNK, PRN
  3. TUMS                               /00193601/ [Concomitant]
     Dosage: UNK, PRN

REACTIONS (1)
  - Maternal exposure during pregnancy [Recovered/Resolved]
